FAERS Safety Report 5363993-4 (Version None)
Quarter: 2007Q2

REPORT INFORMATION
  Report Type: 
  Country: None (occurrence: None)
  Receive Date: 20070530
  Receipt Date: 20070108
  Transmission Date: 20071010
  Serious: No
  Sender: FDA-Public Use
  Company Number: 2007PV028059

PATIENT
  Age: 48 Year
  Sex: Female
  Weight: 83.0083 kg

DRUGS (3)
  1. BYETTA [Suspect]
     Indication: DIABETES MELLITUS NON-INSULIN-DEPENDENT
     Dosage: 10 MCG;BID;SC; 5 MCG;BID;SC
     Route: 058
     Dates: start: 20061209, end: 20070105
  2. BYETTA [Suspect]
     Indication: DIABETES MELLITUS NON-INSULIN-DEPENDENT
     Dosage: 10 MCG;BID;SC; 5 MCG;BID;SC
     Route: 058
     Dates: start: 20070106
  3. AMARYL [Concomitant]

REACTIONS (9)
  - ABDOMINAL DISTENSION [None]
  - ASTHENIA [None]
  - BLOOD GLUCOSE DECREASED [None]
  - CONSTIPATION [None]
  - EARLY SATIETY [None]
  - HEADACHE [None]
  - INCORRECT DOSE ADMINISTERED [None]
  - TREMOR [None]
  - WEIGHT DECREASED [None]
